FAERS Safety Report 4358762-8 (Version None)
Quarter: 2004Q2

REPORT INFORMATION
  Report Type: 
  Country: None (occurrence: None)
  Receive Date: 20040517
  Receipt Date: 20040324
  Transmission Date: 20050107
  Serious: Yes (Life-Threatening, Hospitalization)
  Sender: FDA-Public Use
  Company Number: 200410973EU

PATIENT
  Age: 17 Year
  Sex: Male

DRUGS (4)
  1. KETEK [Suspect]
     Indication: PHARYNGOTONSILLITIS
     Route: 048
     Dates: start: 20040105, end: 20040109
  2. ACETAMINOPHEN [Concomitant]
     Route: 048
  3. THROAT PREPARATIONS [Concomitant]
     Route: 049
  4. ANANASE [Concomitant]
     Indication: CONTUSION
     Route: 048
     Dates: start: 20040123

REACTIONS (14)
  - BONE MARROW DEPRESSION [None]
  - CONTUSION [None]
  - DRUG INEFFECTIVE [None]
  - EOSINOPHILIA [None]
  - EPISTAXIS [None]
  - GINGIVAL HYPERTROPHY [None]
  - GLOSSITIS [None]
  - HYPERAEMIA [None]
  - LYMPHADENOPATHY [None]
  - LYMPHOCYTE COUNT INCREASED [None]
  - MYELODYSPLASTIC SYNDROME [None]
  - ORAL MUCOSAL HYPERTROPHY [None]
  - PANCYTOPENIA [None]
  - PLASMA CELLS INCREASED [None]
